FAERS Safety Report 21542259 (Version 3)
Quarter: 2023Q1

REPORT INFORMATION
  Report Type: Spontaneous
  Country: US (occurrence: US)
  Receive Date: 20221102
  Receipt Date: 20230120
  Transmission Date: 20230417
  Serious: No
  Sender: FDA-Public Use
  Company Number: US-PFIZER INC-PV202200093854

PATIENT
  Age: 45 Year
  Sex: Female

DRUGS (1)
  1. XELJANZ [Suspect]
     Active Substance: TOFACITINIB CITRATE
     Indication: Rheumatoid arthritis
     Dosage: 5 MG, TWICE DAILY
     Route: 048
     Dates: start: 20220928

REACTIONS (7)
  - Migraine [Unknown]
  - Gait disturbance [Unknown]
  - Feeling abnormal [Unknown]
  - Malaise [Recovered/Resolved]
  - Abdominal discomfort [Unknown]
  - Diarrhoea [Unknown]
  - Pain [Unknown]

NARRATIVE: CASE EVENT DATE: 20230117
